FAERS Safety Report 7067510-2 (Version None)
Quarter: 2010Q4

REPORT INFORMATION
  Report Type: 
  Country: None (occurrence: None)
  Receive Date: 20101014
  Receipt Date: 20100917
  Transmission Date: 20110411
  Serious: Yes (Hospitalization, Other)
  Sender: FDA-Public Use
  Company Number: GAM-266-10-US

PATIENT

DRUGS (7)
  1. OCTAGAM [Suspect]
     Dosage: 40 G
     Dates: start: 20100819, end: 20100823
  2. KEPPRA [Suspect]
  3. KLONOPIN [Suspect]
  4. LEXAPRO [Concomitant]
  5. CALCIUM [Concomitant]
  6. ZINC [Concomitant]
  7. FOLIC ACID [Concomitant]

REACTIONS (1)
  - FEBRILE NEUTROPENIA [None]
